FAERS Safety Report 11764780 (Version 1)
Quarter: 2015Q4

REPORT INFORMATION
  Report Type: Spontaneous
  Country: US (occurrence: US)
  Receive Date: 20151121
  Receipt Date: 20151121
  Transmission Date: 20160304
  Serious: Yes (Other)
  Sender: FDA-Public Use
  Company Number: US-AUROBINDO-AUR-APL-2015-10472

PATIENT

DRUGS (12)
  1. METRONIDAZOLE. [Suspect]
     Active Substance: METRONIDAZOLE
     Indication: ESCHERICHIA INFECTION
     Route: 065
  2. COLISTIN [Suspect]
     Active Substance: COLISTIN
     Indication: ESCHERICHIA INFECTION
  3. VANCOMYCIN [Suspect]
     Active Substance: VANCOMYCIN
     Indication: KLEBSIELLA INFECTION
     Route: 065
  4. VANCOMYCIN [Suspect]
     Active Substance: VANCOMYCIN
     Indication: ESCHERICHIA INFECTION
  5. TIGECYCLINE. [Concomitant]
     Active Substance: TIGECYCLINE
     Indication: KLEBSIELLA INFECTION
     Route: 065
  6. CASPOFUNGIN [Suspect]
     Active Substance: CASPOFUNGIN
     Indication: KLEBSIELLA INFECTION
     Route: 065
  7. CASPOFUNGIN [Suspect]
     Active Substance: CASPOFUNGIN
     Indication: ESCHERICHIA INFECTION
  8. MEROPENEM. [Concomitant]
     Active Substance: MEROPENEM
     Indication: ESCHERICHIA INFECTION
  9. METRONIDAZOLE. [Suspect]
     Active Substance: METRONIDAZOLE
     Indication: KLEBSIELLA INFECTION
  10. COLISTIN [Suspect]
     Active Substance: COLISTIN
     Indication: KLEBSIELLA INFECTION
     Route: 065
  11. MEROPENEM. [Concomitant]
     Active Substance: MEROPENEM
     Indication: KLEBSIELLA INFECTION
     Route: 065
  12. TIGECYCLINE. [Concomitant]
     Active Substance: TIGECYCLINE
     Indication: ESCHERICHIA INFECTION

REACTIONS (1)
  - Nephropathy toxic [Recovered/Resolved]
